FAERS Safety Report 19466613 (Version 2)
Quarter: 2022Q1

REPORT INFORMATION
  Report Type: Other
  Country: GB (occurrence: GB)
  Receive Date: 20210628
  Receipt Date: 20220207
  Transmission Date: 20220423
  Serious: Yes (Life-Threatening, Hospitalization, Disabling, Other)
  Sender: FDA-Public Use
  Company Number: None

PATIENT
  Age: 19 Year
  Sex: Female
  Weight: 108 kg

DRUGS (2)
  1. SERTRALINE HYDROCHLORIDE [Suspect]
     Active Substance: SERTRALINE HYDROCHLORIDE
     Indication: Anxiety
     Dosage: UNK
     Route: 048
     Dates: start: 201710
  2. SERTRALINE HYDROCHLORIDE [Suspect]
     Active Substance: SERTRALINE HYDROCHLORIDE
     Indication: Depression
     Dosage: 15 DOSAGE FORM (OVERDOSE) (I THINK IT WAS THE LOWEST DOSE BUT NOT SURE)
     Route: 048
     Dates: end: 20180219

REACTIONS (10)
  - Suicide attempt [Unknown]
  - Yawning [Recovered/Resolved with Sequelae]
  - Abnormal dreams [Recovered/Resolved with Sequelae]
  - Psychotic disorder [Recovered/Resolved with Sequelae]
  - Overdose [Unknown]
  - Paranoia [Recovered/Resolved with Sequelae]
  - Dissociation [Recovered/Resolved with Sequelae]
  - Sexually inappropriate behaviour [Unknown]
  - Libido increased [Recovered/Resolved with Sequelae]
  - Petit mal epilepsy [Recovered/Resolved with Sequelae]

NARRATIVE: CASE EVENT DATE: 20171001
